FAERS Safety Report 24272468 (Version 1)
Quarter: 2024Q3

REPORT INFORMATION
  Report Type: Spontaneous
  Country: US (occurrence: US)
  Receive Date: 20240902
  Receipt Date: 20240902
  Transmission Date: 20241017
  Serious: Yes (Other)
  Sender: AMGEN
  Company Number: US-AMGEN-USASP2024172671

PATIENT

DRUGS (1)
  1. REPATHA [Suspect]
     Active Substance: EVOLOCUMAB
     Indication: Product used for unknown indication
     Dosage: UNK
     Route: 065

REACTIONS (7)
  - Meniere^s disease [Unknown]
  - Constipation [Unknown]
  - Blood pressure fluctuation [Unknown]
  - Fatigue [Unknown]
  - Restless legs syndrome [Unknown]
  - Arthralgia [Unknown]
  - Flatulence [Unknown]
